FAERS Safety Report 10775767 (Version 1)
Quarter: 2015Q1

REPORT INFORMATION
  Report Type: Spontaneous
  Country: US (occurrence: US)
  Receive Date: 20150209
  Receipt Date: 20150209
  Transmission Date: 20150721
  Serious: No
  Sender: FDA-Public Use
  Company Number: US-TEVA-539239USA

PATIENT

DRUGS (1)
  1. COPAXONE [Suspect]
     Active Substance: GLATIRAMER ACETATE
     Indication: RELAPSING-REMITTING MULTIPLE SCLEROSIS
     Dosage: UNKNOWN DOSAGE

REACTIONS (5)
  - Impaired healing [Unknown]
  - Ingrowing nail [Unknown]
  - Local swelling [Unknown]
  - Erythema [Unknown]
  - Wound drainage [Unknown]
